FAERS Safety Report 16215690 (Version 1)
Quarter: 2019Q2

REPORT INFORMATION
  Report Type: Spontaneous
  Country: US (occurrence: US)
  Receive Date: 20190314
  Receipt Date: 20190314
  Transmission Date: 20190711
  Serious: Yes (Hospitalization)
  Sender: FDA-Public Use
  Company Number: None

PATIENT
  Age: 52 Year
  Sex: Male
  Weight: 73.9 kg

DRUGS (2)
  1. AZACITIDINE. [Suspect]
     Active Substance: AZACITIDINE
  2. PEMBROLIZUMAB. [Suspect]
     Active Substance: PEMBROLIZUMAB

REACTIONS (7)
  - Proctalgia [None]
  - Haemorrhoids [None]
  - Constipation [None]
  - Inability to afford medication [None]
  - Pyrexia [None]
  - Anal fissure [None]
  - Rectal haemorrhage [None]

NARRATIVE: CASE EVENT DATE: 20190311
